FAERS Safety Report 7068089-1 (Version None)
Quarter: 2010Q4

REPORT INFORMATION
  Report Type: 
  Country: None (occurrence: None)
  Receive Date: 20101028
  Receipt Date: 20101014
  Transmission Date: 20110411
  Serious: Yes (Other)
  Sender: FDA-Public Use
  Company Number: PHHY2010JP32756

PATIENT
  Age: 50 Year
  Sex: Male

DRUGS (5)
  1. DIOVAN [Suspect]
     Indication: HYPERTENSION
     Dosage: 80 MG, UNK
     Route: 048
     Dates: end: 20100518
  2. DIOVAN [Suspect]
     Dosage: 40 MG, UNK
     Dates: start: 20100519, end: 20100601
  3. BUFERIN [Concomitant]
     Dosage: 81 MG, UNK
     Route: 048
     Dates: start: 20000401
  4. MEXITIL [Concomitant]
     Dosage: UNK
     Dates: start: 20000401
  5. HERBESSOR R [Concomitant]
     Dosage: 100 MG, UNK
     Route: 048
     Dates: start: 20000101

REACTIONS (1)
  - BLOOD CREATINE PHOSPHOKINASE INCREASED [None]
